FAERS Safety Report 9104051 (Version 2)
Quarter: 2013Q1

REPORT INFORMATION
  Report Type: Report from Study
  Country: JP (occurrence: JP)
  Receive Date: 20130219
  Receipt Date: 20130304
  Transmission Date: 20140127
  Serious: Yes (Death)
  Sender: FDA-Public Use
  Company Number: JP-JNJFOC-20130204005

PATIENT
  Sex: Female
  Weight: 44 kg

DRUGS (1)
  1. ONEDURO [Suspect]
     Indication: CANCER PAIN
     Route: 062
     Dates: start: 20120914, end: 20121021

REACTIONS (2)
  - Bile duct cancer [Fatal]
  - Drug intolerance [Unknown]
